FAERS Safety Report 6655393-1 (Version None)
Quarter: 2010Q1

REPORT INFORMATION
  Report Type: 
  Country: None (occurrence: None)
  Receive Date: 20100329
  Receipt Date: 20100325
  Transmission Date: 20100710
  Serious: Yes (Other)
  Sender: FDA-Public Use
  Company Number: PHEH2008US09309

PATIENT
  Sex: Male
  Weight: 111.11 kg

DRUGS (53)
  1. AREDIA [Suspect]
     Indication: MULTIPLE MYELOMA
     Dosage: 90MG MONTHLY
     Route: 042
     Dates: start: 19980114, end: 20020522
  2. ZOMETA [Suspect]
     Indication: MULTIPLE MYELOMA
     Dosage: 4MG MONTHLY
     Route: 042
     Dates: start: 20020619, end: 20050222
  3. METHADONE [Concomitant]
     Dosage: 40 MG / THREE X DAILY
     Route: 048
  4. ROXICODONE [Concomitant]
  5. OXYCONTIN [Concomitant]
  6. DURAGESIC-100 [Concomitant]
  7. MORPHINE [Concomitant]
  8. AMBIEN [Concomitant]
  9. VIAGRA [Concomitant]
  10. CELEBREX [Concomitant]
  11. VIOXX [Concomitant]
  12. BUTALBITAL ACETAMINOPHEN AND CAFFEINE [Concomitant]
  13. PHENERGAN ^AVENTIS PHARMA^ [Concomitant]
     Dosage: 25MG
     Route: 048
  14. PHENERGAN ^AVENTIS PHARMA^ [Concomitant]
     Dosage: 25MG
     Route: 054
  15. PERCOCET [Concomitant]
     Dosage: 5/325 MG / EVERY 6 HRS
     Route: 048
  16. LORTAB [Concomitant]
  17. CELESTONE                               /NET/ [Concomitant]
  18. PREDNISONE TAB [Concomitant]
     Dosage: 20 MG, TID
  19. MELPHALAN HYDROCHLORIDE [Concomitant]
     Dosage: 14 MG, DAILY FOR SEVEN DAYS
  20. TETRACYCLINE [Concomitant]
     Dosage: 250 MG
  21. UNASYN [Concomitant]
     Dosage: UNK
  22. SOLU-MEDROL [Concomitant]
     Dosage: UNK
  23. PROTONIX [Concomitant]
     Dosage: 40 MG, UNK
  24. VELCADE [Concomitant]
  25. DECADRON [Concomitant]
     Dosage: 40 MG, UNK
  26. NEUPOGEN [Concomitant]
     Dosage: 480 MCG
  27. ARANESP [Concomitant]
  28. COUMADIN [Concomitant]
     Dosage: 5MG ALTERNATE 7.5MG EVERY OTHER DAY
     Route: 048
  29. SYNTHROID [Concomitant]
     Dosage: 50 MCQ, QD
     Route: 048
  30. PRILOSEC [Concomitant]
     Dosage: 20 MG, QD
     Route: 048
  31. LOTREL [Concomitant]
     Dosage: 520 MG, QD
     Route: 048
  32. LOVASTATIN [Concomitant]
  33. NEXIUM [Concomitant]
  34. MAALOX                                  /NET/ [Concomitant]
  35. REGLAN [Concomitant]
  36. SUCRALFATE [Concomitant]
  37. FLAGYL [Concomitant]
  38. SENOKOT                                 /UNK/ [Concomitant]
  39. DILAUDID [Concomitant]
  40. AVELOX [Concomitant]
  41. MIRALAX [Concomitant]
  42. LOVENOX [Concomitant]
  43. DOXIL [Concomitant]
  44. VINCRISTINE [Concomitant]
  45. LIDOCAINE [Concomitant]
     Dosage: UNK
  46. OMNIPAQUE ^ADCOCK INGRAM^ [Concomitant]
     Dosage: UNK
  47. LASIX [Concomitant]
     Dosage: UNK
  48. OXYCODONE HCL [Concomitant]
  49. CLINDAMYCIN [Concomitant]
  50. PENICILLIN VK [Concomitant]
  51. SULFAMETHOXAZOLE [Concomitant]
  52. FLEXERIL [Concomitant]
  53. DARVOCET-N 100 [Concomitant]

REACTIONS (61)
  - ANAEMIA [None]
  - ANHEDONIA [None]
  - ANXIETY [None]
  - ARTHRITIS [None]
  - ASTHENIA [None]
  - BONE DISORDER [None]
  - BREAST MASS [None]
  - CALCULUS URETERIC [None]
  - CELLULITIS [None]
  - CENTRAL VENOUS CATHETERISATION [None]
  - CLOSTRIDIUM DIFFICILE COLITIS [None]
  - COSTOCHONDRITIS [None]
  - DEBRIDEMENT [None]
  - DEEP VEIN THROMBOSIS [None]
  - DENTAL CARIES [None]
  - DISABILITY [None]
  - DYSPEPSIA [None]
  - ENDODONTIC PROCEDURE [None]
  - EPICONDYLITIS [None]
  - ERYTHEMA [None]
  - EXOSTOSIS [None]
  - FAT NECROSIS [None]
  - GAMMOPATHY [None]
  - GASTRITIS EROSIVE [None]
  - GASTROOESOPHAGEAL REFLUX DISEASE [None]
  - GINGIVAL INFECTION [None]
  - GYNAECOMASTIA [None]
  - HEPATIC CYST [None]
  - HIATUS HERNIA [None]
  - HYPERBARIC OXYGEN THERAPY [None]
  - HYPOTENSION [None]
  - INFECTION [None]
  - INJURY [None]
  - KYPHOSIS [None]
  - LOOSE TOOTH [None]
  - LYMPHOEDEMA [None]
  - MASS EXCISION [None]
  - METASTATIC NEOPLASM [None]
  - MULTIPLE MYELOMA [None]
  - OBESITY [None]
  - OEDEMA [None]
  - OSTEOARTHRITIS [None]
  - OSTEOMYELITIS [None]
  - OSTEONECROSIS [None]
  - OSTEOPOROSIS [None]
  - PAIN [None]
  - PAIN IN JAW [None]
  - PYREXIA [None]
  - RENAL ATROPHY [None]
  - RENAL STONE REMOVAL [None]
  - RIB FRACTURE [None]
  - SCOLIOSIS [None]
  - SEQUESTRECTOMY [None]
  - SOFT TISSUE DISORDER [None]
  - SPINAL CORD COMPRESSION [None]
  - STEM CELL TRANSPLANT [None]
  - TEETH BRITTLE [None]
  - TENDERNESS [None]
  - THROMBOCYTOPENIA [None]
  - TOOTH EROSION [None]
  - TOOTH EXTRACTION [None]
